FAERS Safety Report 25499603 (Version 1)
Quarter: 2025Q3

REPORT INFORMATION
  Report Type: Report from Study
  Country: IL (occurrence: IL)
  Receive Date: 20250701
  Receipt Date: 20250701
  Transmission Date: 20251020
  Serious: Yes (Congenital Anomaly, Other)
  Sender: BAYER HEALTHCARE LLC
  Company Number: IL-BAYER-2025A084366

PATIENT

DRUGS (1)
  1. LORATADINE\PSEUDOEPHEDRINE SULFATE [Suspect]
     Active Substance: LORATADINE\PSEUDOEPHEDRINE SULFATE

REACTIONS (2)
  - Congenital central nervous system anomaly [None]
  - Foetal exposure during pregnancy [None]
